FAERS Safety Report 23897772 (Version 2)
Quarter: 2024Q3

REPORT INFORMATION
  Report Type: Report from Study
  Country: JP (occurrence: JP)
  Receive Date: 20240524
  Receipt Date: 20240724
  Transmission Date: 20241017
  Serious: Yes (Other)
  Sender: JOHNSON AND JOHNSON
  Company Number: JP-JNJFOC-A-CH2018-178239

PATIENT
  Age: 80 Year
  Sex: Female

DRUGS (38)
  1. TRACLEER [Suspect]
     Active Substance: BOSENTAN
     Indication: Skin ulcer
     Dosage: 62.5 MG, QD, IN THE EVENING
     Route: 048
     Dates: start: 20180122, end: 20180130
  2. TRACLEER [Suspect]
     Active Substance: BOSENTAN
     Dosage: 62.5 MG, BID IN THE MORNING AND EVENING
     Route: 048
     Dates: start: 20180131, end: 20180329
  3. TRACLEER [Suspect]
     Active Substance: BOSENTAN
     Dosage: 62.5 MG, QD IN THE MORNING
     Route: 048
     Dates: start: 20180330, end: 20181026
  4. TRACLEER [Suspect]
     Active Substance: BOSENTAN
     Dosage: IN THE MORNING
     Route: 048
     Dates: start: 20181027, end: 20190607
  5. TRACLEER [Suspect]
     Active Substance: BOSENTAN
     Dosage: IN THE MORNING
     Route: 048
     Dates: start: 20190608, end: 20190703
  6. TRACLEER [Suspect]
     Active Substance: BOSENTAN
     Dosage: IN THE MORNING
     Route: 048
     Dates: start: 20190704, end: 20190906
  7. TRACLEER [Suspect]
     Active Substance: BOSENTAN
     Dosage: IN THE MORNING
     Route: 048
     Dates: start: 20190907, end: 20200118
  8. TRACLEER [Suspect]
     Active Substance: BOSENTAN
     Dosage: IN THE MORNING AND EVENING
     Route: 048
     Dates: start: 20200119, end: 20200508
  9. TRACLEER [Suspect]
     Active Substance: BOSENTAN
     Route: 048
     Dates: start: 20210116
  10. AMLODIPINE [Suspect]
     Active Substance: AMLODIPINE BESYLATE
     Indication: Hypertension
     Route: 048
     Dates: end: 20200715
  11. AMLODIPINE [Suspect]
     Active Substance: AMLODIPINE BESYLATE
     Route: 048
     Dates: start: 20200716
  12. TENORMIN [Concomitant]
     Active Substance: ATENOLOL
     Indication: Hypertension
     Route: 048
  13. AZELNIDIPINE\OLMESARTAN MEDOXOMIL [Concomitant]
     Active Substance: AZELNIDIPINE\OLMESARTAN MEDOXOMIL
     Indication: Hypertension
     Route: 048
     Dates: end: 20200715
  14. RABEPRAZOLE SODIUM [Concomitant]
     Active Substance: RABEPRAZOLE SODIUM
     Indication: Chronic gastritis
     Route: 048
     Dates: end: 20191025
  15. BERIZYM [CELLULASE;DIASTASE;LIPASE;PANCREATIN] [Concomitant]
     Indication: Dyspepsia
     Route: 048
     Dates: end: 20190821
  16. OLMESARTAN [Concomitant]
     Active Substance: OLMESARTAN
     Indication: Hypertension
     Route: 048
     Dates: start: 20180331, end: 20180413
  17. OLMESARTAN [Concomitant]
     Active Substance: OLMESARTAN
     Route: 048
     Dates: start: 20200716, end: 20200826
  18. HYALURONATE SODIUM [Concomitant]
     Active Substance: HYALURONATE SODIUM
     Indication: Dry eye
     Dosage: DOSE UNKNOWN, BOTH EYES
     Route: 047
     Dates: start: 20180223
  19. HYALURONATE SODIUM [Concomitant]
     Active Substance: HYALURONATE SODIUM
     Indication: Prophylaxis
  20. DIQUAFOSOL TETRASODIUM [Concomitant]
     Active Substance: DIQUAFOSOL TETRASODIUM
     Indication: Dry eye
     Dosage: DOSE UNKNOWN, BOTH EYES
     Route: 047
     Dates: start: 20180411, end: 20180530
  21. DIQUAFOSOL TETRASODIUM [Concomitant]
     Active Substance: DIQUAFOSOL TETRASODIUM
     Indication: Prophylaxis
  22. URAPIDIL [Concomitant]
     Active Substance: URAPIDIL
     Indication: Dysuria
     Route: 048
     Dates: start: 20180418, end: 20180526
  23. URAPIDIL [Concomitant]
     Active Substance: URAPIDIL
     Indication: Prophylaxis
  24. GENTAMICIN SULFATE [Concomitant]
     Active Substance: GENTAMICIN SULFATE
     Indication: Skin ulcer
     Dosage: DOSE UNKNOWN
     Route: 061
     Dates: start: 20180122, end: 20180131
  25. SODIUM GUALENATE [Concomitant]
     Active Substance: SODIUM GUALENATE
     Indication: Skin ulcer
     Dosage: DOSE UNKNOWN
     Route: 061
     Dates: start: 20180131
  26. HEPARIN [Concomitant]
     Active Substance: HEPARIN SODIUM
     Indication: Asteatosis
     Dosage: DOSE UNKNOWN
     Route: 061
     Dates: start: 20180223
  27. HEPARIN [Concomitant]
     Active Substance: HEPARIN SODIUM
     Indication: Prophylaxis
  28. BELSOMRA [Concomitant]
     Active Substance: SUVOREXANT
     Indication: Insomnia
     Route: 048
     Dates: start: 20180525, end: 20180723
  29. BELSOMRA [Concomitant]
     Active Substance: SUVOREXANT
     Indication: Prophylaxis
  30. MAGNESIUM OXIDE [Concomitant]
     Active Substance: MAGNESIUM OXIDE
     Indication: Constipation prophylaxis
     Route: 048
     Dates: start: 20180831, end: 20200715
  31. MAGNESIUM OXIDE [Concomitant]
     Active Substance: MAGNESIUM OXIDE
     Route: 048
     Dates: start: 20200716
  32. SENNOSIDES [Concomitant]
     Active Substance: SENNOSIDES
     Indication: Constipation
     Route: 048
     Dates: start: 20180831
  33. OFLOXACIN [Concomitant]
     Active Substance: OFLOXACIN
     Indication: Conjunctivitis
     Dosage: DOSE UNKNOWN
     Route: 047
     Dates: start: 20180718, end: 20180926
  34. OFLOXACIN [Concomitant]
     Active Substance: OFLOXACIN
     Indication: Prophylaxis
  35. TOBRAMYCIN [Concomitant]
     Active Substance: TOBRAMYCIN\TOBRAMYCIN SULFATE
     Indication: Glaucoma
     Dosage: DOSE UNKNOWN
     Route: 047
     Dates: start: 20181128, end: 20190206
  36. TOBRAMYCIN [Concomitant]
     Active Substance: TOBRAMYCIN\TOBRAMYCIN SULFATE
     Indication: Prophylaxis
  37. TOCOPHEROL ACETATE [TOCOPHERYL ACETATE] [Concomitant]
     Indication: Peripheral vascular disorder
     Route: 048
     Dates: start: 20201211, end: 20210115
  38. BERAPROST SODIUM [Concomitant]
     Active Substance: BERAPROST SODIUM
     Indication: Arterial occlusive disease
     Route: 048
     Dates: start: 20201104, end: 20201211

REACTIONS (5)
  - Mixed liver injury [Recovering/Resolving]
  - Feeling abnormal [Recovered/Resolved]
  - Malaise [Recovered/Resolved]
  - Blood pressure decreased [Recovering/Resolving]
  - Constipation [Recovering/Resolving]

NARRATIVE: CASE EVENT DATE: 20180101
